FAERS Safety Report 6735672-X (Version None)
Quarter: 2010Q2

REPORT INFORMATION
  Report Type: 
  Country: None (occurrence: None)
  Receive Date: 20100520
  Receipt Date: 20100520
  Transmission Date: 20101027
  Serious: Yes (Other)
  Sender: FDA-Public Use
  Company Number: None

PATIENT
  Sex: Female

DRUGS (1)
  1. CIMZIA [Suspect]
     Dosage: 400MG WEEK 0, 4 THEN 12 SQ
     Route: 058
     Dates: start: 20100430, end: 20100501

REACTIONS (2)
  - DIZZINESS [None]
  - MUSCLE SPASMS [None]
